FAERS Safety Report 6250194-0 (Version None)
Quarter: 2009Q2

REPORT INFORMATION
  Report Type: 
  Country: None (occurrence: None)
  Receive Date: 20090626
  Receipt Date: 20080818
  Transmission Date: 20091009
  Serious: Yes (Hospitalization)
  Sender: FDA-Public Use
  Company Number: 2008AP002124

PATIENT
  Age: 7 Year
  Sex: Female

DRUGS (7)
  1. VALPROIC ACID [Suspect]
  2. ACETAMINOPHEN [Suspect]
     Indication: PYREXIA
     Dosage: 75 MG/KG;QD
  3. DIVALPROEX SODIUM [Suspect]
  4. VALPROATE SODIUM [Suspect]
  5. DIVALPROEX SODIUM [Suspect]
  6. STIRIPENTOL (STIRIPENTOL) [Concomitant]
  7. CLOBAZAM (CLOBAZAM) [Concomitant]

REACTIONS (11)
  - CARNITINE DEFICIENCY [None]
  - COAGULOPATHY [None]
  - DRUG INTERACTION [None]
  - DRUG TOXICITY [None]
  - HEPATOTOXICITY [None]
  - LIVER INJURY [None]
  - POSTICTAL STATE [None]
  - PROTEIN TOTAL DECREASED [None]
  - PYREXIA [None]
  - RHABDOMYOLYSIS [None]
  - SOPOR [None]
